FAERS Safety Report 19560661 (Version 1)
Quarter: 2021Q3

REPORT INFORMATION
  Report Type: Spontaneous
  Country: US (occurrence: US)
  Receive Date: 20210715
  Receipt Date: 20210715
  Transmission Date: 20211014
  Serious: No
  Sender: FDA-Public Use
  Company Number: None

PATIENT
  Age: 65 Year
  Sex: Female

DRUGS (1)
  1. CABENUVA [Suspect]
     Active Substance: CABOTEGRAVIR\RILPIVIRINE
     Indication: HIV INFECTION
     Dosage: OTHER DOSE:400/600MG;?
     Route: 030
     Dates: start: 20210617

REACTIONS (1)
  - Abnormal loss of weight [None]

NARRATIVE: CASE EVENT DATE: 20210713
